FAERS Safety Report 6491986-2 (Version None)
Quarter: 2009Q4

REPORT INFORMATION
  Report Type: 
  Country: None (occurrence: None)
  Receive Date: 20091208
  Receipt Date: 20091123
  Transmission Date: 20100525
  Serious: Yes (Hospitalization)
  Sender: FDA-Public Use
  Company Number: 001643

PATIENT
  Sex: Male

DRUGS (6)
  1. VIMPAT [Suspect]
     Dates: start: 20090616
  2. LUMINAL /00023201/ [Concomitant]
  3. LAMICTAL [Concomitant]
  4. VALPROATE SODIUM [Concomitant]
  5. VALPROATE SODIUM [Concomitant]
  6. LAMOTRIGINE [Concomitant]

REACTIONS (2)
  - ASTHENIA [None]
  - CONVULSION [None]
